FAERS Safety Report 11812449 (Version 2)
Quarter: 2015Q4

REPORT INFORMATION
  Report Type: Report from Study
  Country: US (occurrence: US)
  Receive Date: 20151208
  Receipt Date: 20151223
  Transmission Date: 20160305
  Serious: Yes (Hospitalization, Other)
  Sender: FDA-Public Use
  Company Number: US-GILEAD-2015-0186369

PATIENT
  Age: 78 Year
  Sex: Female

DRUGS (1)
  1. IDELALISIB [Suspect]
     Active Substance: IDELALISIB
     Indication: NEOPLASM MALIGNANT
     Dosage: 150 MG, UNK
     Route: 048

REACTIONS (3)
  - Constipation [Unknown]
  - Lung disorder [Unknown]
  - Lymphoma [Unknown]
